FAERS Safety Report 24731133 (Version 1)
Quarter: 2024Q4

REPORT INFORMATION
  Report Type: Spontaneous
  Country: AU (occurrence: AU)
  Receive Date: 20241213
  Receipt Date: 20241213
  Transmission Date: 20250114
  Serious: Yes (Other)
  Sender: ALEXION PHARMACEUTICALS
  Company Number: AU-AstraZeneca-CH-00762744A

PATIENT

DRUGS (4)
  1. LYNPARZA [Suspect]
     Active Substance: OLAPARIB
     Indication: Ovarian cancer
     Route: 065
  2. LYNPARZA [Suspect]
     Active Substance: OLAPARIB
     Route: 065
  3. LYNPARZA [Suspect]
     Active Substance: OLAPARIB
     Route: 065
  4. LYNPARZA [Suspect]
     Active Substance: OLAPARIB
     Route: 065

REACTIONS (1)
  - Renal impairment [Unknown]
